FAERS Safety Report 6902998-6 (Version None)
Quarter: 2010Q3

REPORT INFORMATION
  Report Type: 
  Country: None (occurrence: None)
  Receive Date: 20100803
  Receipt Date: 20080825
  Transmission Date: 20110219
  Serious: No
  Sender: FDA-Public Use
  Company Number: US-PFIZER INC-2008057901

PATIENT
  Sex: Male
  Weight: 127.3 kg

DRUGS (7)
  1. LYRICA [Suspect]
     Indication: NEUROPATHY PERIPHERAL
     Route: 048
     Dates: start: 20080701, end: 20080714
  2. INSULIN [Concomitant]
  3. ANTIHYPERTENSIVES [Concomitant]
  4. SIMVASTATIN [Concomitant]
  5. TORSEMIDE [Concomitant]
  6. HUMULIN N [Concomitant]
  7. GLYBURIDE [Concomitant]

REACTIONS (7)
  - ABDOMINAL DISTENSION [None]
  - DRUG INEFFECTIVE [None]
  - EYE IRRITATION [None]
  - EYE SWELLING [None]
  - FLUID RETENTION [None]
  - SOMNOLENCE [None]
  - WEIGHT INCREASED [None]
